FAERS Safety Report 12120712 (Version 2)
Quarter: 2017Q2

REPORT INFORMATION
  Report Type: Spontaneous
  Country: US (occurrence: US)
  Receive Date: 20160226
  Receipt Date: 20170602
  Transmission Date: 20170829
  Serious: Yes (Other)
  Sender: FDA-Public Use
  Company Number: US-ASTRAZENECA-2016SE20382

PATIENT
  Age: 64 Year
  Sex: Female
  Weight: 60.3 kg

DRUGS (27)
  1. LYRICA [Suspect]
     Active Substance: PREGABALIN
     Indication: NEURALGIA
     Route: 048
  2. PLAVIX [Concomitant]
     Active Substance: CLOPIDOGREL BISULFATE
     Indication: STENT PLACEMENT
     Dosage: 75MG ONE TABLET BY MOUTH EVERY DAY
     Route: 048
     Dates: start: 2010
  3. CALTRATE +D [Concomitant]
     Indication: SUPPLEMENTATION THERAPY
     Dosage: TWO TABLETS BY MOUTH A DAY
     Route: 048
  4. NITROLINGUAL [Concomitant]
     Active Substance: NITROGLYCERIN
     Indication: CHEST PAIN
     Dosage: ONE SPRAY UNDER TONGUE WHEN NEEDED FOR
     Route: 060
  5. ISOSORBIDE. [Concomitant]
     Active Substance: ISOSORBIDE
     Indication: HYPERTENSION
     Dosage: 60MG ONE TABLET BY MOUTH EVERY DAY
     Route: 048
     Dates: start: 1998
  6. PRILOSEC [Suspect]
     Active Substance: OMEPRAZOLE MAGNESIUM
     Route: 048
  7. LYRICA [Suspect]
     Active Substance: PREGABALIN
     Indication: PAIN IN EXTREMITY
     Dosage: 100MG ONE CAPSULE BY MOUTH THREE TIMES A DAY
     Route: 048
  8. GABAPENTIN. [Concomitant]
     Active Substance: GABAPENTIN
     Indication: FIBROMYALGIA
     Dosage: ACTAV, 300MG ONE CAPSULE BY MOUTH EVERY EIGHT HOURS
     Route: 048
  9. PROTONIX [Concomitant]
     Active Substance: PANTOPRAZOLE SODIUM
     Indication: GASTROOESOPHAGEAL REFLUX DISEASE
     Dosage: 20 MG ONE TABLET BY MOUTH EVERY DAY
     Route: 048
  10. PROTONIX [Concomitant]
     Active Substance: PANTOPRAZOLE SODIUM
     Indication: GASTROOESOPHAGEAL REFLUX DISEASE
     Dosage: 40 MG ONE TABLET BY MOUTH EVERY DAY
     Route: 048
  11. ATENOLOL. [Suspect]
     Active Substance: ATENOLOL
     Indication: HYPERTENSION
     Route: 048
     Dates: start: 1998
  12. LYRICA [Suspect]
     Active Substance: PREGABALIN
     Indication: PAIN IN EXTREMITY
     Route: 048
  13. LIPITOR [Concomitant]
     Active Substance: ATORVASTATIN CALCIUM
     Indication: BLOOD CHOLESTEROL INCREASED
     Dosage: 80MG ONE TABLET BY MOUTH DAILY
     Route: 048
     Dates: start: 1999
  14. PROTONIX [Concomitant]
     Active Substance: PANTOPRAZOLE SODIUM
     Indication: GASTROOESOPHAGEAL REFLUX DISEASE
     Dosage: 40MG ONE TABLET BY MOUTH EVERY DAY
     Route: 048
  15. MIDRIN [Concomitant]
     Active Substance: ACETAMINOPHEN\DICHLORALPHENAZONE\ISOMETHEPTENE
     Indication: MIGRAINE
     Route: 048
     Dates: start: 1968
  16. IRON [Concomitant]
     Active Substance: IRON
     Indication: ANAEMIA
     Dosage: 325MG TWO TABLETS BY MOUTH DAILY
     Route: 048
  17. ATENOLOL. [Suspect]
     Active Substance: ATENOLOL
     Indication: HEART RATE IRREGULAR
     Route: 048
     Dates: start: 1998
  18. GABAPENTIN. [Concomitant]
     Active Substance: GABAPENTIN
     Indication: FIBROMYALGIA
     Dosage: ACTAV, 300MG ONE CAPSULE BY MOUTH EVERY EIGHT HOURS
     Route: 048
  19. LOSARTAN. [Concomitant]
     Active Substance: LOSARTAN
     Indication: HYPERTENSION
     Dosage: 100MG ONE TABLET BY MOUTH DAILY
     Route: 048
     Dates: start: 2010
  20. CENTRUM SILVER [Concomitant]
     Active Substance: MINERALS\VITAMINS
     Indication: SUPPLEMENTATION THERAPY
     Dosage: ONE TABLET BY MOUTH DAILY
     Route: 048
  21. ALLEGRA [Concomitant]
     Active Substance: FEXOFENADINE HYDROCHLORIDE
     Indication: HYPERSENSITIVITY
     Dosage: 180MG ONE TABLET BY MOUTH TWICE A DAY
     Route: 048
  22. PERCOCET [Concomitant]
     Active Substance: ACETAMINOPHEN\OXYCODONE HYDROCHLORIDE
     Indication: INTERVERTEBRAL DISC PROTRUSION
     Dosage: 10/325MG ONE TABLET BY MOUTH EVERY SIX HOURS WHEN NEEDED
     Route: 048
  23. LYRICA [Suspect]
     Active Substance: PREGABALIN
     Indication: NEURALGIA
     Dosage: 100MG ONE CAPSULE BY MOUTH THREE TIMES A DAY
     Route: 048
  24. VALIUM [Concomitant]
     Active Substance: DIAZEPAM
     Indication: MUSCLE SPASMS
     Dosage: ONE HALF TO ONE TABLET BY MOUTH EVERY 6HOURS WHEN NEEDED
     Route: 048
  25. LEXAPRO [Concomitant]
     Active Substance: ESCITALOPRAM OXALATE
     Indication: ANXIETY
     Dosage: 10MG ONE TABLET BY MOUTH DAILY
     Route: 048
     Dates: start: 201511
  26. NEXIUM [Suspect]
     Active Substance: ESOMEPRAZOLE MAGNESIUM
     Route: 048
  27. LEXAPRO [Concomitant]
     Active Substance: ESCITALOPRAM OXALATE
     Indication: DEPRESSION
     Dosage: 10MG ONE TABLET BY MOUTH DAILY
     Route: 048
     Dates: start: 201511

REACTIONS (16)
  - Intervertebral disc disorder [Unknown]
  - Myocardial infarction [Unknown]
  - Myalgia [Unknown]
  - Abdominal discomfort [Unknown]
  - Cardiac disorder [Unknown]
  - Back pain [Unknown]
  - Chest pain [Unknown]
  - Pain in extremity [Unknown]
  - Burning sensation [Unknown]
  - Malaise [Unknown]
  - Pain [Unknown]
  - Withdrawal syndrome [Recovered/Resolved]
  - Intervertebral disc protrusion [Unknown]
  - Gastric ulcer [Unknown]
  - Feeling abnormal [Unknown]
  - Gastrooesophageal reflux disease [Unknown]

NARRATIVE: CASE EVENT DATE: 2010
